FAERS Safety Report 6166633-X (Version None)
Quarter: 2009Q2

REPORT INFORMATION
  Report Type: 
  Country: None (occurrence: None)
  Receive Date: 20090423
  Receipt Date: 20090423
  Transmission Date: 20091009
  Serious: Yes (Other)
  Sender: FDA-Public Use
  Company Number: None

PATIENT
  Age: 54 Year
  Sex: Male
  Weight: 97.3 kg

DRUGS (2)
  1. SOLIRIS [Suspect]
     Dosage: 1200 MG,600 MG, ONCE IV PREVENT ALLOGRAFT REJECTION
     Route: 042
  2. . [Concomitant]
     Route: 042

REACTIONS (3)
  - ATRIAL FIBRILLATION [None]
  - GRAND MAL CONVULSION [None]
  - HYPERTENSION [None]
